FAERS Safety Report 16729324 (Version 1)
Quarter: 2019Q3

REPORT INFORMATION
  Report Type: Report from Study
  Country: US (occurrence: US)
  Receive Date: 20190822
  Receipt Date: 20190822
  Transmission Date: 20191005
  Serious: Yes (Hospitalization)
  Sender: FDA-Public Use
  Company Number: US-PFIZER INC-2019353192

PATIENT
  Age: 71 Year
  Sex: Female
  Weight: 168 kg

DRUGS (3)
  1. PF-05212384 [Suspect]
     Active Substance: GEDATOLISIB
     Indication: BREAST CANCER METASTATIC
     Dosage: 150 MG, ON DAYS 1, 8, 15, 22 OF EACH 28 DAYS CYCLE
     Route: 042
     Dates: start: 20180917
  2. FULVESTRANT. [Suspect]
     Active Substance: FULVESTRANT
     Indication: BREAST CANCER METASTATIC
     Dosage: 500 MG,DAYS 1, 15 OF CYCLE 1, THEN CYCLE 2, DAY1 AND THEN DAY 28 OF EACH SUBSEQUENT CYCLE(+/- 3DAYS)
     Route: 030
     Dates: start: 20180917
  3. PALBOCICLIB [Suspect]
     Active Substance: PALBOCICLIB
     Indication: BREAST CANCER METASTATIC
     Dosage: 125 MG, ONCE DAILY FOR 21 DAYS ON 7 DAYS OFF FOR EACH 28 DAY CYCLE
     Route: 048
     Dates: start: 20180917, end: 20190504

REACTIONS (2)
  - Anaemia [Recovering/Resolving]
  - Acute kidney injury [Recovering/Resolving]

NARRATIVE: CASE EVENT DATE: 20190811
